FAERS Safety Report 9200074 (Version 2)
Quarter: 2013Q1

REPORT INFORMATION
  Report Type: Report from Study
  Country: US (occurrence: US)
  Receive Date: 20130329
  Receipt Date: 20130329
  Transmission Date: 20140127
  Serious: No
  Sender: FDA-Public Use
  Company Number: US-PFIZER INC-2012325313

PATIENT
  Age: 39 Year
  Sex: Female
  Weight: 85.26 kg

DRUGS (11)
  1. NALTREXONE HYDROCHLORIDE, OXYCODONE HYDROCHLORIDE [Suspect]
     Indication: BACK PAIN
     Dosage: OPEN LABEL ALO-02 CAPSULE
     Route: 064
     Dates: start: 20120918, end: 20120925
  2. NALTREXONE HYDROCHLORIDE, OXYCODONE HYDROCHLORIDE [Suspect]
     Indication: BACK PAIN
     Dosage: OPEN LABEL ALO-02 CAPSULE
     Route: 064
     Dates: start: 20120918, end: 20120925
  3. BLINDED PLACEBO [Suspect]
     Indication: BACK PAIN
     Dosage: OPEN LABEL ALO-02 CAPSULE
     Route: 064
     Dates: start: 20120918, end: 20120925
  4. BLINDED PLACEBO [Suspect]
     Indication: BACK PAIN
     Dosage: OPEN LABEL ALO-02 CAPSULE
     Route: 064
     Dates: start: 20120918, end: 20120925
  5. NALTREXONE HYDROCHLORIDE, OXYCODONE HYDROCHLORIDE [Suspect]
     Dosage: DOUBLE BLIND ALO-02 OR PLACEBO CAPSULE
     Route: 064
     Dates: start: 20120925
  6. NALTREXONE HYDROCHLORIDE, OXYCODONE HYDROCHLORIDE [Suspect]
     Dosage: DOUBLE BLIND ALO-02 OR PLACEBO CAPSULE
     Route: 064
     Dates: start: 20120925
  7. BLINDED PLACEBO [Suspect]
     Dosage: DOUBLE BLIND ALO-02 OR PLACEBO CAPSULE
     Route: 064
     Dates: start: 20120925
  8. BLINDED PLACEBO [Suspect]
     Dosage: DOUBLE BLIND ALO-02 OR PLACEBO CAPSULE
     Route: 064
     Dates: start: 20120925
  9. DEPO-PROVERA [Suspect]
     Indication: CONTRACEPTION
     Dosage: EVERY 3 MONTHS INJECTION, LAST INJ. 01SEP2012
     Route: 064
     Dates: start: 201006, end: 20120901
  10. CLOBETASOL [Concomitant]
     Indication: ECZEMA
     Dosage: UNK
     Dates: start: 20121002
  11. AMOXACILLIN [Concomitant]
     Indication: OROPHARYNGEAL PAIN
     Dosage: 250 MG, 2X/DAY
     Route: 064
     Dates: start: 20121122, end: 20121130

REACTIONS (5)
  - Maternal exposure timing unspecified [Unknown]
  - Pregnancy with injectable contraceptive [None]
  - Drug effect decreased [None]
  - Abortion spontaneous [None]
  - Exposure during pregnancy [None]
